FAERS Safety Report 5827271-9 (Version None)
Quarter: 2008Q4

REPORT INFORMATION
  Report Type: 
  Country: None (occurrence: None)
  Receive Date: 20080725
  Receipt Date: 20080715
  Transmission Date: 20090506
  Serious: Yes (Hospitalization)
  Sender: FDA-Public Use
  Company Number: 2008JP002740

PATIENT
  Age: 81 Year
  Sex: Female
  Weight: 61.2 kg

DRUGS (12)
  1. VESICARE [Suspect]
     Indication: HYPERTONIC BLADDER
     Dosage: 2.5 MG, BID, ORAL
     Route: 048
     Dates: start: 20070614, end: 20080414
  2. SAIKOKEISHITOU (HERBAL EXTRACT NOS) PER ORAL NOS [Concomitant]
  3. SELBEX (TEPRENONE) PER ORAL NOS [Concomitant]
  4. KAMAG G (MAGNESIUM OXIDE) PER ORAL NOS [Concomitant]
  5. ULCERLMIN (SUCRALFATE) PER ORAL NOS [Concomitant]
  6. BAYASPIRIN PER ORAL NOS [Concomitant]
  7. GASMOTIN (MOSAPRIDE CITRATE) PER ORAL NOS [Concomitant]
  8. LANDSEN (CLONAZEPAM) PER ORAL NOS [Concomitant]
  9. AMOBAN (ZOPICLONE) PER ORAL NOS [Concomitant]
  10. PARIET (RABEPRAZOLE SODIUM) PER ORAL NOS [Concomitant]
  11. TECIPUL (SETIPTILINE MALEATE) PER ORAL NOS [Concomitant]
  12. DEPAKENE (VALPROATE SODIUM) PER ORAL NOS [Concomitant]

REACTIONS (13)
  - ARTHRALGIA [None]
  - BLOOD CREATINE PHOSPHOKINASE INCREASED [None]
  - BLOOD URIC ACID INCREASED [None]
  - CELLULITIS [None]
  - DEHYDRATION [None]
  - LOSS OF CONSCIOUSNESS [None]
  - MUSCULOSKELETAL PAIN [None]
  - MYALGIA [None]
  - PERIARTHRITIS [None]
  - PROTEIN URINE PRESENT [None]
  - PYREXIA [None]
  - VOMITING [None]
  - WHITE BLOOD CELL COUNT INCREASED [None]
